FAERS Safety Report 7759415-6 (Version None)
Quarter: 2011Q3

REPORT INFORMATION
  Report Type: 
  Country: None (occurrence: None)
  Receive Date: 20110919
  Receipt Date: 20110912
  Transmission Date: 20111222
  Serious: Yes (Hospitalization, Other)
  Sender: FDA-Public Use
  Company Number: JP-ROCHE-756131

PATIENT
  Sex: Male

DRUGS (39)
  1. TOCILIZUMAB [Suspect]
     Route: 041
     Dates: start: 20100623, end: 20100623
  2. TOCILIZUMAB [Suspect]
     Route: 041
     Dates: start: 20100721, end: 20100721
  3. CYTOTEC [Concomitant]
     Route: 048
  4. ALENDRONATE SODIUM [Concomitant]
     Route: 048
  5. RABEPRAZOLE SODIUM [Concomitant]
     Route: 048
  6. SULFAMETHOXAZOLE [Concomitant]
     Route: 048
     Dates: start: 20090730, end: 20100113
  7. TOCILIZUMAB [Suspect]
     Indication: RHEUMATOID ARTHRITIS
     Route: 041
     Dates: start: 20090114, end: 20090114
  8. TOCILIZUMAB [Suspect]
     Route: 041
     Dates: start: 20090212, end: 20090212
  9. TOCILIZUMAB [Suspect]
     Route: 041
     Dates: start: 20100826, end: 20100826
  10. TOCILIZUMAB [Suspect]
     Route: 041
     Dates: start: 20100924, end: 20100924
  11. TOCILIZUMAB [Suspect]
     Route: 041
     Dates: start: 20101216, end: 20101216
  12. TOCILIZUMAB [Suspect]
     Route: 041
     Dates: start: 20110113, end: 20110113
  13. TOCILIZUMAB [Suspect]
     Route: 041
     Dates: start: 20110105, end: 20110105
  14. PREDNISOLONE [Suspect]
     Indication: RHEUMATOID ARTHRITIS
     Route: 048
     Dates: end: 20090310
  15. PREDNISOLONE [Suspect]
     Route: 048
     Dates: start: 20090311, end: 20090924
  16. PREDNISOLONE [Suspect]
     Route: 048
     Dates: start: 20090925
  17. HALCION [Concomitant]
     Dosage: AS NEEDED 0.25 MG A DAY
     Route: 048
  18. FOLIC ACID [Concomitant]
     Route: 048
     Dates: start: 20090730, end: 20100113
  19. TOCILIZUMAB [Suspect]
     Route: 041
     Dates: start: 20090603, end: 20090603
  20. TOCILIZUMAB [Suspect]
     Route: 041
     Dates: start: 20100310, end: 20100310
  21. TOCILIZUMAB [Suspect]
     Route: 041
     Dates: start: 20100526, end: 20100526
  22. TOCILIZUMAB [Suspect]
     Route: 041
     Dates: start: 20101208, end: 20101208
  23. RHEUMATREX [Concomitant]
     Route: 048
     Dates: start: 20090730, end: 20100113
  24. TOCILIZUMAB [Suspect]
     Route: 041
     Dates: start: 20090311, end: 20090311
  25. TOCILIZUMAB [Suspect]
     Route: 041
     Dates: start: 20090408, end: 20090408
  26. TOCILIZUMAB [Suspect]
     Route: 041
     Dates: start: 20100729, end: 20100729
  27. TOCILIZUMAB [Suspect]
     Route: 041
     Dates: start: 20101021, end: 20101021
  28. TOCILIZUMAB [Suspect]
     Route: 041
     Dates: start: 20100915, end: 20100915
  29. ETODOLAC [Concomitant]
     Route: 048
  30. TOCILIZUMAB [Suspect]
     Route: 041
     Dates: start: 20090507, end: 20090507
  31. TOCILIZUMAB [Suspect]
     Route: 041
     Dates: start: 20090701, end: 20090701
  32. TOCILIZUMAB [Suspect]
     Route: 041
     Dates: start: 20100210, end: 20100210
  33. TOCILIZUMAB [Suspect]
     Route: 041
     Dates: start: 20100331, end: 20100331
  34. TOCILIZUMAB [Suspect]
     Route: 041
     Dates: start: 20100428, end: 20100428
  35. VOLTAREN [Concomitant]
     Dosage: SINGLE USE, DOSAGE DURING A DAY: 25 MG
     Route: 054
  36. TOCILIZUMAB [Suspect]
     Route: 041
     Dates: start: 20101118, end: 20101118
  37. TOCILIZUMAB [Suspect]
     Route: 041
     Dates: start: 20100818, end: 20100818
  38. TOCILIZUMAB [Suspect]
     Route: 041
     Dates: start: 20101013, end: 20101013
  39. TOCILIZUMAB [Suspect]
     Route: 041
     Dates: start: 20101110, end: 20101110

REACTIONS (6)
  - CHEST PAIN [None]
  - ANGINA PECTORIS [None]
  - CORONARY ARTERY STENOSIS [None]
  - ARTHRITIS [None]
  - BLOOD CHOLESTEROL INCREASED [None]
  - ECZEMA [None]
